FAERS Safety Report 8270116-0 (Version None)
Quarter: 2012Q2

REPORT INFORMATION
  Report Type: 
  Country: None (occurrence: None)
  Receive Date: 20120410
  Receipt Date: 20120330
  Transmission Date: 20120825
  Serious: No
  Sender: FDA-Public Use
  Company Number: PHEH2011US04665

PATIENT
  Sex: Male
  Weight: 108.84 kg

DRUGS (9)
  1. INSULIN [Concomitant]
     Indication: DIABETES MELLITUS
     Dosage: 40 U, QID
  2. MICARDIS [Concomitant]
     Indication: BLOOD PRESSURE INCREASED
     Dates: start: 20110610
  3. INSULIN [Concomitant]
     Dosage: 90 U, QID
     Dates: start: 20101010
  4. QUALAQUIN [Concomitant]
     Dosage: 324 MG, UNK
  5. TASIGNA [Suspect]
     Dosage: 300 MG, BID
     Dates: start: 20110915
  6. HUMALOG [Concomitant]
     Dosage: UNK
  7. TASIGNA [Suspect]
     Indication: CHRONIC MYELOID LEUKAEMIA
     Dosage: 300 MG, BID
     Route: 048
     Dates: start: 20110408
  8. ASPIRIN [Concomitant]
  9. ANDROGEL [Concomitant]

REACTIONS (2)
  - RECTAL DISCHARGE [None]
  - MUSCLE SPASMS [None]
